FAERS Safety Report 9720810 (Version 3)
Quarter: 2014Q1

REPORT INFORMATION
  Report Type: Report from Study
  Country: CA (occurrence: CA)
  Receive Date: 20131129
  Receipt Date: 20140218
  Transmission Date: 20141002
  Serious: Yes (Other)
  Sender: FDA-Public Use
  Company Number: CA-JNJFOC-20131115304

PATIENT
  Age: 49 Year
  Sex: Female
  Weight: 61.4 kg

DRUGS (6)
  1. REMICADE [Suspect]
     Indication: CROHN^S DISEASE
     Dosage: 72 DOSE
     Route: 042
     Dates: start: 20131230
  2. REMICADE [Suspect]
     Indication: CROHN^S DISEASE
     Dosage: 71 ST INFUSION
     Route: 042
     Dates: start: 20131122
  3. REMICADE [Suspect]
     Indication: CROHN^S DISEASE
     Route: 042
     Dates: start: 2004
  4. DILAUDID [Concomitant]
     Route: 065
  5. FLOMAX [Concomitant]
     Route: 065
  6. PREDNISONE [Concomitant]
     Route: 065

REACTIONS (2)
  - Nephrolithiasis [Recovered/Resolved]
  - Crohn^s disease [Recovering/Resolving]
